FAERS Safety Report 22122120 (Version 2)
Quarter: 2023Q2

REPORT INFORMATION
  Report Type: Spontaneous
  Country: JP (occurrence: JP)
  Receive Date: 20230321
  Receipt Date: 20230601
  Transmission Date: 20230721
  Serious: Yes (Hospitalization, Other)
  Sender: FDA-Public Use
  Company Number: JP-MSD-2303JPN001986JAA

PATIENT
  Age: 78 Year
  Sex: Female

DRUGS (5)
  1. KEYTRUDA [Suspect]
     Active Substance: PEMBROLIZUMAB
     Indication: Triple negative breast cancer
     Dosage: 200 MILLIGRAM, Q3W
     Route: 041
     Dates: start: 20230213
  2. PACLITAXEL [Concomitant]
     Active Substance: PACLITAXEL
     Indication: Triple negative breast cancer
     Dosage: 80 MILLIGRAM/SQ. METER, QW
     Route: 041
     Dates: start: 20230213, end: 202302
  3. PACLITAXEL [Concomitant]
     Active Substance: PACLITAXEL
     Dosage: ONE STEP REDUCTION, QW
     Route: 041
     Dates: start: 202302
  4. CARBOPLATIN [Concomitant]
     Active Substance: CARBOPLATIN
     Indication: Triple negative breast cancer
     Dosage: AUC1.5/WEEK
     Route: 041
     Dates: start: 20230213, end: 202302
  5. CARBOPLATIN [Concomitant]
     Active Substance: CARBOPLATIN
     Dosage: ONE STEP REDUCTION, A WEEK
     Route: 041
     Dates: start: 202302

REACTIONS (2)
  - Duodenal ulcer [Recovered/Resolved]
  - Anaemia [Recovered/Resolved]

NARRATIVE: CASE EVENT DATE: 20230222
